FAERS Safety Report 22278716 (Version 2)
Quarter: 2023Q2

REPORT INFORMATION
  Report Type: Spontaneous
  Country: IE (occurrence: IE)
  Receive Date: 20230503
  Receipt Date: 20230601
  Transmission Date: 20230721
  Serious: Yes (Hospitalization, Other)
  Sender: FDA-Public Use
  Company Number: IE-BAYER-2023A058221

PATIENT
  Age: 57 Year
  Sex: Female

DRUGS (1)
  1. EYLEA [Suspect]
     Active Substance: AFLIBERCEPT
     Indication: Product used for unknown indication
     Dosage: STRENGTH: 40 MG/ML, FORMULATION: UNKNOWN

REACTIONS (2)
  - Hyphaema [Unknown]
  - Intraocular pressure increased [Unknown]
